FAERS Safety Report 6775077-9 (Version None)
Quarter: 2010Q2

REPORT INFORMATION
  Report Type: 
  Country: None (occurrence: None)
  Receive Date: 20100617
  Receipt Date: 20100609
  Transmission Date: 20101027
  Serious: Yes (Hospitalization)
  Sender: FDA-Public Use
  Company Number: B0659703A

PATIENT
  Sex: Male

DRUGS (15)
  1. ROPINIROLE HYDROCHLORIDE [Suspect]
     Indication: RESTLESS LEGS SYNDROME
     Dosage: .25MG TWICE PER DAY
     Route: 048
     Dates: end: 20100414
  2. LANSOPRAZOLE [Suspect]
     Indication: DRUG USE FOR UNKNOWN INDICATION
     Dosage: 30MG PER DAY
     Route: 048
     Dates: start: 20100223, end: 20100414
  3. EFFERALGAN CODEINE [Suspect]
     Indication: DRUG USE FOR UNKNOWN INDICATION
     Dosage: 1UNIT AS REQUIRED
     Route: 048
  4. LAMALINE [Suspect]
     Indication: SELF-MEDICATION
     Route: 048
     Dates: start: 20100402
  5. FUROSEMIDE [Suspect]
     Indication: DRUG USE FOR UNKNOWN INDICATION
     Dosage: 20MG TWICE PER DAY
     Route: 048
     Dates: end: 20100414
  6. PRAVASTATIN [Suspect]
     Indication: DRUG USE FOR UNKNOWN INDICATION
     Dosage: 20MG PER DAY
     Route: 048
     Dates: end: 20100414
  7. TAMSULOSIN HCL [Suspect]
     Indication: DRUG USE FOR UNKNOWN INDICATION
     Dosage: .4MG PER DAY
     Route: 048
     Dates: end: 20100414
  8. PNEUMOREL [Suspect]
     Indication: DRUG USE FOR UNKNOWN INDICATION
     Dosage: 80MG TWICE PER DAY
     Route: 048
     Dates: end: 20100414
  9. AMIODARONE [Concomitant]
     Route: 065
  10. KARDEGIC [Concomitant]
     Route: 065
  11. PREVISCAN [Concomitant]
     Route: 065
  12. CORTANCYL [Concomitant]
     Route: 065
  13. BECLONE [Concomitant]
     Route: 065
  14. VENTOLIN [Concomitant]
     Route: 065
  15. NEXIUM [Concomitant]
     Route: 065

REACTIONS (9)
  - AGRANULOCYTOSIS [None]
  - BLOOD CULTURE POSITIVE [None]
  - BONE MARROW MYELOGRAM ABNORMAL [None]
  - CHILLS [None]
  - CHOLESTASIS [None]
  - HEPATOCELLULAR INJURY [None]
  - HYPERTHERMIA [None]
  - LYMPHOPENIA [None]
  - NEUTROPENIA [None]
